FAERS Safety Report 21332404 (Version 2)
Quarter: 2022Q4

REPORT INFORMATION
  Report Type: Spontaneous
  Country: IE (occurrence: IE)
  Receive Date: 20220914
  Receipt Date: 20221005
  Transmission Date: 20230113
  Serious: Yes (Hospitalization, Other)
  Sender: FDA-Public Use
  Company Number: IE-MYLANLABS-2022M1093646

PATIENT
  Age: 65 Year
  Sex: Female

DRUGS (6)
  1. CLOZARIL [Suspect]
     Active Substance: CLOZAPINE
     Indication: Schizophrenia
     Dosage: 375 MILLIGRAM, QD (75 MG AM, 300 MG NOCTE)
     Route: 048
     Dates: start: 20070504
  2. ASPIRIN [Concomitant]
     Active Substance: ASPIRIN
     Dosage: 75 MILLIGRAM, QD
     Route: 065
  3. ATENOLOL [Concomitant]
     Active Substance: ATENOLOL
     Dosage: 25 MILLIGRAM, QD
     Route: 065
  4. ATORVASTATIN [Concomitant]
     Active Substance: ATORVASTATIN
     Dosage: 10 MILLIGRAM, NOON
     Route: 065
  5. JANUMET [Concomitant]
     Active Substance: METFORMIN HYDROCHLORIDE\SITAGLIPTIN PHOSPHATE
     Dosage: 50/1000 MG BID
     Route: 065
  6. JARDIANCE [Concomitant]
     Active Substance: EMPAGLIFLOZIN
     Dosage: 10 MILLIGRAM, QD
     Route: 065

REACTIONS (2)
  - Haemoglobin decreased [Recovering/Resolving]
  - Vaginal haemorrhage [Unknown]

NARRATIVE: CASE EVENT DATE: 20220826
